FAERS Safety Report 10401710 (Version 1)
Quarter: 2014Q3

REPORT INFORMATION
  Report Type: Spontaneous
  Country: DE (occurrence: DE)
  Receive Date: 20140822
  Receipt Date: 20140822
  Transmission Date: 20150326
  Serious: Yes (Congenital Anomaly, Other)
  Sender: FDA-Public Use
  Company Number: DE-JNJFOC-20140811313

PATIENT
  Age: 0 Day
  Sex: Female
  Weight: 3.92 kg

DRUGS (4)
  1. TOPAMAX [Suspect]
     Active Substance: TOPIRAMATE
     Indication: JUVENILE MYOCLONIC EPILEPSY
     Route: 064
  2. KEPPRA [Suspect]
     Active Substance: LEVETIRACETAM
     Indication: JUVENILE MYOCLONIC EPILEPSY
     Route: 064
  3. ORFIRIL [Suspect]
     Active Substance: VALPROIC ACID
     Indication: JUVENILE MYOCLONIC EPILEPSY
     Route: 064
  4. FRISIUM [Suspect]
     Active Substance: CLOBAZAM
     Indication: JUVENILE MYOCLONIC EPILEPSY
     Route: 064

REACTIONS (4)
  - Foetal exposure during pregnancy [Recovered/Resolved]
  - Cleft palate [Not Recovered/Not Resolved]
  - Neonatal respiratory distress syndrome [Recovered/Resolved]
  - Patent ductus arteriosus [Unknown]

NARRATIVE: CASE EVENT DATE: 20130607
